FAERS Safety Report 10547672 (Version 1)
Quarter: 2014Q4

REPORT INFORMATION
  Report Type: Spontaneous
  Country: US (occurrence: None)
  Receive Date: 20141027
  Receipt Date: 20141027
  Transmission Date: 20150529
  Serious: Yes (Hospitalization)
  Sender: FDA-Public Use
  Company Number: None

PATIENT
  Age: 56 Year
  Sex: Male
  Weight: 129.5 kg

DRUGS (2)
  1. IDARUBICIN [Suspect]
     Active Substance: IDARUBICIN
     Dates: end: 20141015
  2. CYTARABINE. [Suspect]
     Active Substance: CYTARABINE
     Dates: end: 20141009

REACTIONS (7)
  - Hypotension [None]
  - Colitis [None]
  - Diarrhoea [None]
  - Acute kidney injury [None]
  - Pallor [None]
  - Abdominal pain [None]
  - Lethargy [None]

NARRATIVE: CASE EVENT DATE: 20141019
